FAERS Safety Report 26102227 (Version 2)
Quarter: 2025Q4

REPORT INFORMATION
  Report Type: Spontaneous
  Country: EU (occurrence: EU)
  Receive Date: 20251128
  Receipt Date: 20251201
  Transmission Date: 20260118
  Serious: Yes (Other)
  Sender: BRISTOL-MYERS SQUIBB COMPANY
  Company Number: EU-BRISTOL-MYERS SQUIBB COMPANY-2025-160957

PATIENT
  Age: 62 Year
  Sex: Male

DRUGS (7)
  1. NIVOLUMAB [Suspect]
     Active Substance: NIVOLUMAB
     Indication: Metastatic malignant melanoma
  2. NIVOLUMAB [Suspect]
     Active Substance: NIVOLUMAB
     Dosage: DOSE : UNAVAILABLE;     FREQ : 3 CYCLES (DATES: JUNE 16, JULY 1, JULY 21, 2025)
  3. NIVOLUMAB [Suspect]
     Active Substance: NIVOLUMAB
     Dosage: DOSE : UNAVAILABLE;     FREQ : 3 CYCLES (DATES: JUNE 16, JULY 1, JULY 21, 2025)
  4. IPILIMUMAB [Suspect]
     Active Substance: IPILIMUMAB
     Indication: Metastatic malignant melanoma
  5. IPILIMUMAB [Suspect]
     Active Substance: IPILIMUMAB
  6. IPILIMUMAB [Suspect]
     Active Substance: IPILIMUMAB
  7. DEXAMETHASONE [Concomitant]
     Active Substance: DEXAMETHASONE
     Indication: Metastatic malignant melanoma

REACTIONS (4)
  - Neurotoxicity [Unknown]
  - Tumour pseudoprogression [Unknown]
  - Cholestasis [Unknown]
  - Malignant neoplasm progression [Not Recovered/Not Resolved]
